FAERS Safety Report 6974954-3 (Version None)
Quarter: 2010Q3

REPORT INFORMATION
  Report Type: 
  Country: None (occurrence: None)
  Receive Date: 20100909
  Receipt Date: 20090116
  Transmission Date: 20110219
  Serious: No
  Sender: FDA-Public Use
  Company Number: US-WYE-H07758909

PATIENT
  Sex: Female
  Weight: 91.71 kg

DRUGS (14)
  1. PRISTIQ [Suspect]
     Indication: DEPRESSION
     Dosage: HALF OF A 50 MG TABLET DAILY
     Route: 048
     Dates: start: 20081212, end: 20081218
  2. PRISTIQ [Suspect]
     Route: 048
     Dates: start: 20081219, end: 20081225
  3. PRISTIQ [Suspect]
     Dosage: ONE AND A HALF OF A 50 MG TABLET DAILY
     Route: 048
     Dates: start: 20081226, end: 20090101
  4. PRISTIQ [Suspect]
     Route: 048
     Dates: start: 20090102
  5. LEVOTHYROXINE SODIUM [Concomitant]
  6. ABILIFY [Concomitant]
  7. CELEXA [Concomitant]
  8. FISH OIL [Concomitant]
  9. ADDERALL 10 [Concomitant]
  10. SODIUM SALICYLATE ECT [Concomitant]
  11. TRAZODONE HCL [Concomitant]
  12. VICODIN [Concomitant]
  13. CYMBALTA [Concomitant]
     Dosage: TAPERED OFF
     Dates: end: 20090101
  14. BUPROPION HCL [Concomitant]

REACTIONS (1)
  - GASTROOESOPHAGEAL REFLUX DISEASE [None]
